FAERS Safety Report 8950926 (Version 2)
Quarter: 2013Q1

REPORT INFORMATION
  Report Type: Spontaneous
  Country: GR (occurrence: GR)
  Receive Date: 20121207
  Receipt Date: 20130207
  Transmission Date: 20140127
  Serious: Yes (Life-Threatening, Hospitalization)
  Sender: FDA-Public Use
  Company Number: GR-ABBOTT-12P-066-1016954-00

PATIENT
  Age: 66 Year
  Sex: Female

DRUGS (4)
  1. HUMIRA [Suspect]
     Indication: PSORIATIC ARTHROPATHY
     Route: 058
     Dates: end: 201206
  2. HUMIRA [Suspect]
     Indication: RHEUMATOID ARTHRITIS
  3. PREZOLON [Concomitant]
     Indication: PSORIATIC ARTHROPATHY
  4. PREZOLON [Concomitant]
     Indication: RHEUMATOID ARTHRITIS

REACTIONS (4)
  - Pulmonary vasculitis [Recovering/Resolving]
  - Pyrexia [Unknown]
  - Lung infection [Recovered/Resolved]
  - Psoriatic arthropathy [Recovered/Resolved]
